FAERS Safety Report 18364687 (Version 1)
Quarter: 2020Q4

REPORT INFORMATION
  Report Type: Spontaneous
  Country: US (occurrence: US)
  Receive Date: 20201009
  Receipt Date: 20201009
  Transmission Date: 20210114
  Serious: Yes (Other)
  Sender: FDA-Public Use
  Company Number: US-BAUSCH-BL-2020-028403

PATIENT
  Age: 55 Year
  Sex: Female

DRUGS (2)
  1. PYRIDOSTIGMINE BROMIDE 60 MG [Suspect]
     Active Substance: PYRIDOSTIGMINE BROMIDE
     Indication: PRODUCT USE IN UNAPPROVED INDICATION
  2. PYRIDOSTIGMINE BROMIDE 60 MG [Suspect]
     Active Substance: PYRIDOSTIGMINE BROMIDE
     Indication: MYASTHENIC SYNDROME
     Route: 065

REACTIONS (3)
  - Therapeutic product ineffective for unapproved indication [Unknown]
  - Product use in unapproved indication [Unknown]
  - Paraesthesia [Unknown]
